FAERS Safety Report 11408950 (Version 6)
Quarter: 2019Q1

REPORT INFORMATION
  Report Type: Report from Study
  Country: CA (occurrence: CA)
  Receive Date: 20150824
  Receipt Date: 20190221
  Transmission Date: 20190417
  Serious: Yes (Hospitalization, Other)
  Sender: FDA-Public Use
  Company Number: CA-ROCHE-1450100

PATIENT
  Age: 79 Year
  Sex: Female

DRUGS (29)
  1. RITUXAN [Suspect]
     Active Substance: RITUXIMAB
     Route: 042
     Dates: start: 20180305
  2. PROLIA [Concomitant]
     Active Substance: DENOSUMAB
  3. VENTOLIN [Concomitant]
     Active Substance: ALBUTEROL SULFATE
  4. LOSARTAN. [Concomitant]
     Active Substance: LOSARTAN
  5. METHOTREXATE. [Concomitant]
     Active Substance: METHOTREXATE
  6. LASIX [Concomitant]
     Active Substance: FUROSEMIDE
  7. DIMENHYDRINATE. [Concomitant]
     Active Substance: DIMENHYDRINATE
  8. DIPHENHYDRAMINE HCL [Concomitant]
     Active Substance: DIPHENHYDRAMINE HYDROCHLORIDE
     Indication: PREMEDICATION
     Route: 048
     Dates: start: 20140813
  9. METHYLPREDNISOLONE. [Concomitant]
     Active Substance: METHYLPREDNISOLONE
     Indication: PREMEDICATION
     Route: 042
     Dates: start: 20140813
  10. ATORVASTATIN [Concomitant]
     Active Substance: ATORVASTATIN
  11. RITUXAN [Suspect]
     Active Substance: RITUXIMAB
     Route: 042
     Dates: start: 20170824
  12. ACETAMINOPHEN. [Concomitant]
     Active Substance: ACETAMINOPHEN
     Indication: PREMEDICATION
     Route: 048
     Dates: start: 20140813
  13. ADALAT [Concomitant]
     Active Substance: NIFEDIPINE
  14. TYLENOL [Concomitant]
     Active Substance: ACETAMINOPHEN
  15. COLCHICINE. [Concomitant]
     Active Substance: COLCHICINE
  16. SULFASALAZINE. [Concomitant]
     Active Substance: SULFASALAZINE
  17. DOCUSATE [Concomitant]
     Active Substance: DOCUSATE
  18. RITUXAN [Suspect]
     Active Substance: RITUXIMAB
     Route: 042
     Dates: start: 20160722
  19. SULFASALAZINE. [Concomitant]
     Active Substance: SULFASALAZINE
  20. LAX-A-DAY [Concomitant]
  21. PANTOLOC [Concomitant]
     Active Substance: PANTOPRAZOLE SODIUM
  22. FUROSEMIDE. [Concomitant]
     Active Substance: FUROSEMIDE
  23. HYDROCORTISONE. [Concomitant]
     Active Substance: HYDROCORTISONE
  24. RITUXAN [Suspect]
     Active Substance: RITUXIMAB
     Indication: RHEUMATOID ARTHRITIS
     Route: 042
     Dates: start: 20140813
  25. CLONIDINE. [Concomitant]
     Active Substance: CLONIDINE
  26. LIPITOR [Concomitant]
     Active Substance: ATORVASTATIN CALCIUM
  27. FOLIC ACID. [Concomitant]
     Active Substance: FOLIC ACID
  28. VOLTAREN [Concomitant]
     Active Substance: DICLOFENAC SODIUM
     Route: 047
  29. NORTRIPTYLINE [Concomitant]
     Active Substance: NORTRIPTYLINE

REACTIONS (8)
  - Infusion related reaction [Recovered/Resolved]
  - Cyst [Unknown]
  - Polyp [Unknown]
  - Fall [Unknown]
  - Abdominal hernia [Unknown]
  - Cardiac disorder [Unknown]
  - Intervertebral disc protrusion [Unknown]
  - Hernia [Not Recovered/Not Resolved]

NARRATIVE: CASE EVENT DATE: 20140813
